FAERS Safety Report 12775072 (Version 2)
Quarter: 2016Q4

REPORT INFORMATION
  Report Type: Spontaneous
  Country: JP (occurrence: JP)
  Receive Date: 20160923
  Receipt Date: 20161013
  Transmission Date: 20170207
  Serious: Yes (Life-Threatening, Hospitalization, Other)
  Sender: FDA-Public Use
  Company Number: JP-ELI_LILLY_AND_COMPANY-JP201609002267

PATIENT
  Sex: Male
  Weight: 53 kg

DRUGS (5)
  1. HEPARIN [Concomitant]
     Active Substance: HEPARIN SODIUM
     Dosage: UNK
     Route: 065
  2. PRASUGREL HYDROCHLORIDE [Suspect]
     Active Substance: PRASUGREL HYDROCHLORIDE
     Indication: MYOCARDIAL INFARCTION
     Dosage: UNK UNK, UNKNOWN
     Route: 048
  3. BAYASPIRIN [Suspect]
     Active Substance: ASPIRIN
     Indication: MYOCARDIAL INFARCTION
     Dosage: UNK UNK, UNKNOWN
     Route: 048
  4. HYDROXYETHYLSTARCH [Suspect]
     Active Substance: HETASTARCH
     Dosage: 3500 ML, UNK
     Route: 065
  5. BAYASPIRIN [Suspect]
     Active Substance: ASPIRIN
     Dosage: UNK

REACTIONS (7)
  - Upper gastrointestinal haemorrhage [Unknown]
  - Shock haemorrhagic [Unknown]
  - Lung disorder [Unknown]
  - Gastric polyps [Unknown]
  - Gastrointestinal haemorrhage [Unknown]
  - Gastric haemorrhage [Unknown]
  - Acute kidney injury [Unknown]
